FAERS Safety Report 25980023 (Version 1)
Quarter: 2025Q4

REPORT INFORMATION
  Report Type: Spontaneous
  Country: EU (occurrence: EU)
  Receive Date: 20251030
  Receipt Date: 20251030
  Transmission Date: 20260118
  Serious: Yes (Hospitalization)
  Sender: VERTEX
  Company Number: None

PATIENT
  Age: 19 Year
  Sex: Female
  Weight: 47 kg

DRUGS (5)
  1. ELEXACAFTOR\IVACAFTOR\TEZACAFTOR [Suspect]
     Active Substance: ELEXACAFTOR\IVACAFTOR\TEZACAFTOR
     Indication: Cystic fibrosis
     Dosage: 75MG IVACAFTOR/50MG TEZACAFTOR/ 100MG ELEXACAFTOR, TAKE TWO TABLETS IN A DAY
     Route: 048
     Dates: start: 20200101, end: 20240923
  2. ELEXACAFTOR\IVACAFTOR\TEZACAFTOR [Suspect]
     Active Substance: ELEXACAFTOR\IVACAFTOR\TEZACAFTOR
     Dosage: ONE TAB ONCE A DAY
     Route: 048
     Dates: start: 20240924, end: 20241115
  3. ELEXACAFTOR\IVACAFTOR\TEZACAFTOR [Suspect]
     Active Substance: ELEXACAFTOR\IVACAFTOR\TEZACAFTOR
     Dosage: TWO TABS ONCE A DAY
     Route: 048
     Dates: start: 20241218, end: 20241231
  4. KALYDECO [Suspect]
     Active Substance: IVACAFTOR
     Indication: Cystic fibrosis
     Dosage: ONE TAB ONCE A DAY
     Route: 048
     Dates: start: 20200101, end: 20241115
  5. KALYDECO [Suspect]
     Active Substance: IVACAFTOR
     Dosage: ONE TAB ONCE A DAY
     Route: 048
     Dates: start: 20241218, end: 20241231

REACTIONS (2)
  - Hepatic cytolysis [Recovering/Resolving]
  - Cholestasis [Recovering/Resolving]

NARRATIVE: CASE EVENT DATE: 20240923
